FAERS Safety Report 20135514 (Version 1)
Quarter: 2021Q4

REPORT INFORMATION
  Report Type: Spontaneous
  Country: US (occurrence: US)
  Receive Date: 20211201
  Receipt Date: 20211201
  Transmission Date: 20220303
  Serious: Yes (Other)
  Sender: FDA-Public Use
  Company Number: US-AMERICAN REGENT INC-2021003149

PATIENT

DRUGS (2)
  1. FLOXURIDINE [Suspect]
     Active Substance: FLOXURIDINE
     Indication: Colorectal cancer metastatic
     Dosage: UNK
     Route: 013
  2. FLOXURIDINE [Suspect]
     Active Substance: FLOXURIDINE
     Indication: Metastases to liver

REACTIONS (1)
  - Non-alcoholic steatohepatitis [Unknown]
